FAERS Safety Report 8584462-4 (Version None)
Quarter: 2012Q3

REPORT INFORMATION
  Report Type: 
  Country: None (occurrence: None)
  Receive Date: 20120810
  Receipt Date: 20120807
  Transmission Date: 20120928
  Serious: No
  Sender: FDA-Public Use
  Company Number: US-PFIZER INC-2012192704

PATIENT
  Age: 51 Year
  Sex: Female
  Weight: 40.816 kg

DRUGS (3)
  1. MULTI-VITAMINS [Concomitant]
     Indication: OSTEOPOROSIS
     Dosage: UNK
  2. PRILOSEC [Concomitant]
     Indication: GASTRIC DISORDER
     Dosage: UNK
  3. CHANTIX [Suspect]
     Indication: SMOKING CESSATION THERAPY
     Dosage: 0.5 MG, 1X/DAY
     Route: 048
     Dates: start: 20120805

REACTIONS (2)
  - VOMITING [None]
  - GASTRIC DISORDER [None]
